FAERS Safety Report 17831854 (Version 2)
Quarter: 2025Q2

REPORT INFORMATION
  Report Type: Spontaneous
  Country: IT (occurrence: IT)
  Receive Date: 20200528
  Receipt Date: 20250621
  Transmission Date: 20250717
  Serious: Yes (Other)
  Sender: AUROBINDO
  Company Number: IT-MLMSERVICE-20200518-2302445-1

PATIENT
  Age: 24 Year
  Sex: Male

DRUGS (6)
  1. RISPERIDONE [Suspect]
     Active Substance: RISPERIDONE
     Indication: Schizophrenia
     Route: 065
  2. RISPERIDONE [Suspect]
     Active Substance: RISPERIDONE
     Route: 065
     Dates: start: 2018
  3. RISPERIDONE [Suspect]
     Active Substance: RISPERIDONE
     Route: 065
     Dates: start: 201801
  4. OLANZAPINE [Suspect]
     Active Substance: OLANZAPINE
     Indication: Schizophrenia
     Route: 065
  5. LORAZEPAM [Concomitant]
     Active Substance: LORAZEPAM
     Indication: Hypnotherapy
     Route: 065
  6. LORAZEPAM [Concomitant]
     Active Substance: LORAZEPAM
     Route: 065

REACTIONS (11)
  - Blood prolactin increased [Recovering/Resolving]
  - Weight increased [Unknown]
  - Extrapyramidal disorder [Unknown]
  - Affective disorder [Unknown]
  - Tremor [Recovering/Resolving]
  - Libido decreased [Recovering/Resolving]
  - Sexual dysfunction [Unknown]
  - Metabolic disorder [Unknown]
  - Blood cholesterol abnormal [Unknown]
  - Blood triglycerides abnormal [Unknown]
  - Mood altered [Unknown]

NARRATIVE: CASE EVENT DATE: 20180101
